FAERS Safety Report 17813949 (Version 3)
Quarter: 2020Q2

REPORT INFORMATION
  Report Type: Spontaneous
  Country: IT (occurrence: IT)
  Receive Date: 20200521
  Receipt Date: 20200618
  Transmission Date: 20200714
  Serious: Yes (Other)
  Sender: FDA-Public Use
  Company Number: NVSC2020IT140387

PATIENT
  Age: 82 Year
  Sex: Male

DRUGS (1)
  1. ZOMETA [Suspect]
     Active Substance: ZOLEDRONIC ACID
     Indication: PROSTATE CANCER METASTATIC
     Dosage: UNK (4 MG/100 ML)
     Route: 042
     Dates: start: 20180901, end: 20200101

REACTIONS (2)
  - Osteonecrosis [Unknown]
  - Osteonecrosis of jaw [Not Recovered/Not Resolved]
